FAERS Safety Report 4556186-1 (Version None)
Quarter: 2005Q1

REPORT INFORMATION
  Report Type: 
  Country: None (occurrence: None)
  Receive Date: 20050103
  Receipt Date: 20040913
  Transmission Date: 20050727
  Serious: Yes (Hospitalization)
  Sender: FDA-Public Use
  Company Number: 2004UW19219

PATIENT
  Age: 56 Year
  Sex: Male

DRUGS (1)
  1. CRESTOR [Suspect]
     Dosage: 10 MG PO
     Route: 048

REACTIONS (2)
  - HEPATIC ENZYME INCREASED [None]
  - RENAL FUNCTION TEST ABNORMAL [None]
